FAERS Safety Report 5232820-8 (Version None)
Quarter: 2007Q1

REPORT INFORMATION
  Report Type: 
  Country: None (occurrence: None)
  Receive Date: 20070206
  Receipt Date: 20070206
  Transmission Date: 20070707
  Serious: Yes (Death, Life-Threatening)
  Sender: FDA-Public Use
  Company Number: None

PATIENT
  Age: 44 Year
  Sex: Male

DRUGS (3)
  1. ACITRETIN [Suspect]
     Indication: PSORIASIS
     Dosage: DAILY  PO
     Route: 048
     Dates: start: 20070124, end: 20070202
  2. BECLOMETHASONE DIPROPIONATE [Concomitant]
  3. ACITRETIN [Concomitant]

REACTIONS (4)
  - ASPIRATION [None]
  - BASILAR ARTERY OCCLUSION [None]
  - BRADYCARDIA [None]
  - CEREBROVASCULAR ACCIDENT [None]
